FAERS Safety Report 11571126 (Version 1)
Quarter: 2015Q3

REPORT INFORMATION
  Report Type: Spontaneous
  Country: US (occurrence: US)
  Receive Date: 20150929
  Receipt Date: 20150929
  Transmission Date: 20151125
  Serious: No
  Sender: FDA-Public Use
  Company Number: US-GLAXOSMITHKLINE-US2015GSK116081

PATIENT

DRUGS (7)
  1. GEODON [Suspect]
     Active Substance: ZIPRASIDONE HYDROCHLORIDE\ZIPRASIDONE MESYLATE
     Dosage: 80 MG, UNK
  2. PROPRANOLOL [Suspect]
     Active Substance: PROPRANOLOL\PROPRANOLOL HYDROCHLORIDE
     Dosage: UNK, PRN
  3. LITHIUM. [Suspect]
     Active Substance: LITHIUM
  4. LAMICTAL [Suspect]
     Active Substance: LAMOTRIGINE
     Dosage: 300 MG, UNK
  5. CLONAZEPAM. [Suspect]
     Active Substance: CLONAZEPAM
  6. ALPRAZOLAM. [Suspect]
     Active Substance: ALPRAZOLAM
  7. VISTARIL [Suspect]
     Active Substance: HYDROXYZINE PAMOATE
     Dosage: UNK, PRN

REACTIONS (2)
  - Adverse drug reaction [Unknown]
  - Memory impairment [Unknown]
